FAERS Safety Report 22243757 (Version 5)
Quarter: 2023Q2

REPORT INFORMATION
  Report Type: Report from Study
  Country: US (occurrence: US)
  Receive Date: 20230424
  Receipt Date: 20230517
  Transmission Date: 20230722
  Serious: Yes (Other)
  Sender: FDA-Public Use
  Company Number: US-002147023-NVSC2023US088891

PATIENT
  Sex: Male
  Weight: 78.2 kg

DRUGS (1)
  1. KYMRIAH [Suspect]
     Active Substance: TISAGENLECLEUCEL
     Indication: Lymphocyte adoptive therapy
     Dosage: 3 INFUSIONS: 5X10^8 CELLS; 1.5X10^9 CELLS; 3X10^9 CELLS.
     Route: 042
     Dates: start: 20120612, end: 20120821

REACTIONS (2)
  - Neuroendocrine carcinoma of the skin [Recovering/Resolving]
  - Second primary malignancy [Recovering/Resolving]
